FAERS Safety Report 20842341 (Version 2)
Quarter: 2022Q3

REPORT INFORMATION
  Report Type: Spontaneous
  Country: US (occurrence: US)
  Receive Date: 20220518
  Receipt Date: 20220902
  Transmission Date: 20221026
  Serious: No
  Sender: FDA-Public Use
  Company Number: US-NOVARTISTESTPH-NVSC2022US113813

PATIENT

DRUGS (1)
  1. COSENTYX [Suspect]
     Active Substance: SECUKINUMAB
     Indication: Product used for unknown indication
     Dosage: 10 MONTHS
     Route: 065

REACTIONS (8)
  - Tendon disorder [Unknown]
  - Injection site bruising [Unknown]
  - Arthropathy [Unknown]
  - Fatigue [Unknown]
  - Arthralgia [Unknown]
  - Pain in extremity [Unknown]
  - Spinal pain [Unknown]
  - Drug ineffective [Unknown]
